FAERS Safety Report 19805637 (Version 2)
Quarter: 2021Q3

REPORT INFORMATION
  Report Type: Spontaneous
  Country: JP (occurrence: JP)
  Receive Date: 20210908
  Receipt Date: 20210927
  Transmission Date: 20211014
  Serious: No
  Sender: FDA-Public Use
  Company Number: JP-UCBSA-2021041672

PATIENT
  Age: 90 Year
  Sex: Female

DRUGS (3)
  1. VIMPAT [Suspect]
     Active Substance: LACOSAMIDE
     Indication: EPILEPSY
     Dosage: 50 MILLIGRAM, 2X/DAY (BID)
     Route: 041
  2. FOSPHENYTOIN [FOSPHENYTOIN SODIUM] [Concomitant]
     Indication: PRODUCT USED FOR UNKNOWN INDICATION
     Dosage: 750MG DAILY
  3. FOSPHENYTOIN [FOSPHENYTOIN SODIUM] [Concomitant]
     Dosage: 325MG DAILY

REACTIONS (1)
  - Drug ineffective [Unknown]
